FAERS Safety Report 9228154 (Version 1)
Quarter: 2013Q2

REPORT INFORMATION
  Report Type: Report from Study
  Country: CA (occurrence: CA)
  Receive Date: 20130412
  Receipt Date: 20130412
  Transmission Date: 20140414
  Serious: Yes (Other)
  Sender: FDA-Public Use
  Company Number: CA-ROCHE-1209468

PATIENT
  Sex: Female

DRUGS (9)
  1. RITUXAN [Suspect]
     Indication: RHEUMATOID ARTHRITIS
     Route: 042
     Dates: start: 20121031
  2. DIPHENHYDRAMINE HCL [Concomitant]
     Indication: PREMEDICATION
     Route: 048
     Dates: start: 20121031
  3. ACETAMINOPHEN [Concomitant]
     Indication: PREMEDICATION
     Route: 048
     Dates: start: 20121031
  4. METHYLPREDNISOLONE [Concomitant]
     Indication: PREMEDICATION
     Route: 042
     Dates: start: 20121031
  5. METHOTREXATE [Concomitant]
  6. NAPROXEN [Concomitant]
  7. OMEPRAZOLE [Concomitant]
  8. EURO-FOLIC [Concomitant]
  9. LORAZEPAM [Concomitant]
     Route: 065

REACTIONS (2)
  - Mass [Not Recovered/Not Resolved]
  - Lymphoma [Not Recovered/Not Resolved]
